FAERS Safety Report 8177722-2 (Version None)
Quarter: 2012Q1

REPORT INFORMATION
  Report Type: 
  Country: None (occurrence: None)
  Receive Date: 20120301
  Receipt Date: 20120227
  Transmission Date: 20120608
  Serious: Yes (Death, Hospitalization)
  Sender: FDA-Public Use
  Company Number: PHEH2012US003398

PATIENT
  Sex: Female
  Weight: 85 kg

DRUGS (15)
  1. NYSTATIN [Concomitant]
     Route: 061
  2. VASELINE [Concomitant]
     Route: 061
  3. FLORINEF [Concomitant]
     Dosage: 1 DF, QD
     Route: 048
  4. NAPROSYN [Concomitant]
     Dosage: 1 DF, BID
     Route: 048
  5. RECLAST [Suspect]
     Indication: OSTEOPOROSIS
     Dosage: 5 MG, YEARLY
     Route: 042
     Dates: start: 20110316
  6. CALCIUM W/VITAMIN D NOS [Concomitant]
     Dosage: 1500MG CALCIUM- 400U VIT D, BID
  7. DEBROX [Concomitant]
     Dosage: UNK DRP, UNK
  8. POLYTRIM [Concomitant]
     Dosage: 2 DRP, Q14H
     Route: 047
  9. MIRALAX [Concomitant]
     Dosage: 9 MG, QD
     Route: 048
  10. SELENIUM SULFIDE [Concomitant]
  11. RISPERDAL [Concomitant]
     Dosage: 0.5 ML, DAILY
     Route: 048
  12. ACETAMINOPHEN [Concomitant]
     Route: 048
  13. SYNTHROID [Concomitant]
     Dosage: 1 DF, QD
     Route: 048
  14. PROAMATINE [Concomitant]
     Dosage: 1 DF, BID
     Route: 048
  15. POLYVINYL ALCOHOL [Concomitant]
     Dosage: 1 DRP, 4 TIMES DAILY
     Route: 047

REACTIONS (5)
  - UROSEPSIS [None]
  - DEMENTIA ALZHEIMER'S TYPE [None]
  - DELIRIUM [None]
  - CARDIAC DISORDER [None]
  - ESCHERICHIA INFECTION [None]
